FAERS Safety Report 12935448 (Version 1)
Quarter: 2016Q4

REPORT INFORMATION
  Report Type: Spontaneous
  Country: US (occurrence: US)
  Receive Date: 20161114
  Receipt Date: 20161114
  Transmission Date: 20170207
  Serious: No
  Sender: FDA-Public Use
  Company Number: US-JAZZ-2016-US-015086

PATIENT
  Sex: Female
  Weight: 83.9 kg

DRUGS (10)
  1. BELVIQ [Concomitant]
     Active Substance: LORCASERIN HYDROCHLORIDE
  2. PRENATAL [Concomitant]
     Active Substance: VITAMINS
  3. VITAMIN B12 [Concomitant]
     Active Substance: CYANOCOBALAMIN
  4. XYREM [Suspect]
     Active Substance: SODIUM OXYBATE
     Dosage: 3 G, FIRST DOSE
     Route: 048
     Dates: start: 201601, end: 20160718
  5. XYREM [Suspect]
     Active Substance: SODIUM OXYBATE
     Dosage: 3.75 G, SECOND DOSE
     Route: 048
     Dates: start: 201601, end: 20160718
  6. MULTIVITAMINS [Concomitant]
     Active Substance: VITAMINS
  7. NUVIGIL [Concomitant]
     Active Substance: ARMODAFINIL
  8. XYREM [Suspect]
     Active Substance: SODIUM OXYBATE
     Dosage: 3 G, BID
     Route: 048
     Dates: start: 201504, end: 201601
  9. IRON [Concomitant]
     Active Substance: IRON
  10. XYREM [Suspect]
     Active Substance: SODIUM OXYBATE
     Indication: NARCOLEPSY
     Dosage: 2.25 G, BID
     Route: 048
     Dates: start: 201502, end: 201504

REACTIONS (2)
  - Vomiting in pregnancy [Unknown]
  - Exposure during pregnancy [Not Recovered/Not Resolved]
